FAERS Safety Report 22702210 (Version 3)
Quarter: 2024Q2

REPORT INFORMATION
  Report Type: Spontaneous
  Country: US (occurrence: US)
  Receive Date: 20230713
  Receipt Date: 20240404
  Transmission Date: 20240716
  Serious: No
  Sender: FDA-Public Use
  Company Number: US-ABBVIE-5324825

PATIENT
  Sex: Male

DRUGS (3)
  1. LUPRON [Suspect]
     Active Substance: LEUPROLIDE ACETATE
     Indication: Product used for unknown indication
     Route: 065
  2. ENZALUTAMIDE [Suspect]
     Active Substance: ENZALUTAMIDE
     Indication: Prostatic specific antigen increased
     Dosage: : 80 MILLIGRAM, DAILY, DISCONTINUED
     Route: 048
     Dates: start: 202304
  3. ENZALUTAMIDE [Suspect]
     Active Substance: ENZALUTAMIDE
     Indication: Prostatic specific antigen increased
     Dosage: REGIMEN 2, FORM STRENGTH: 80 MG,
     Route: 048
     Dates: start: 20240103

REACTIONS (3)
  - Prostatic specific antigen increased [Recovering/Resolving]
  - Dermatitis allergic [Recovered/Resolved]
  - Off label use [Recovering/Resolving]
